FAERS Safety Report 5548387-0 (Version None)
Quarter: 2007Q4

REPORT INFORMATION
  Report Type: 
  Country: None (occurrence: None)
  Receive Date: 20071206
  Receipt Date: 20071126
  Transmission Date: 20080405
  Serious: Yes (Congenital Anomaly)
  Sender: FDA-Public Use
  Company Number: 2007-168281-NL

PATIENT
  Sex: Male

DRUGS (1)
  1. NUVARING [Suspect]

REACTIONS (9)
  - AMBLYOPIA [None]
  - ANKYLOGLOSSIA CONGENITAL [None]
  - CHARGE SYNDROME [None]
  - CONGENITAL JAW MALFORMATION [None]
  - DRUG EXPOSURE DURING PREGNANCY [None]
  - EAR DISORDER [None]
  - PALATAL DISORDER [None]
  - PREGNANCY WITH CONTRACEPTIVE DEVICE [None]
  - VESICOURETERIC REFLUX [None]
